FAERS Safety Report 10745876 (Version 1)
Quarter: 2015Q1

REPORT INFORMATION
  Report Type: Spontaneous
  Country: US (occurrence: None)
  Receive Date: 20150127
  Receipt Date: 20150127
  Transmission Date: 20150721
  Serious: Yes (Hospitalization)
  Sender: FDA-Public Use
  Company Number: None

PATIENT
  Age: 64 Year
  Sex: Female

DRUGS (1)
  1. TECFIDERA [Suspect]
     Active Substance: DIMETHYL FUMARATE
     Indication: MULTIPLE SCLEROSIS
     Route: 048
     Dates: start: 20140723

REACTIONS (5)
  - Dysarthria [None]
  - Feelings of worthlessness [None]
  - Self-injurious ideation [None]
  - Pain [None]
  - Amnesia [None]

NARRATIVE: CASE EVENT DATE: 20141224
